FAERS Safety Report 8943890 (Version 1)
Quarter: 2012Q4

REPORT INFORMATION
  Report Type: 
  Country: US (occurrence: US)
  Receive Date: 20121204
  Receipt Date: 20121204
  Transmission Date: 20130627
  Serious: Yes (Other)
  Sender: FDA-Public Use
  Company Number: US-BAYER-2012-126090

PATIENT

DRUGS (2)
  1. NEO-SYNEPHRINE [Suspect]
     Indication: NASAL CONGESTION
  2. NASONEX [Concomitant]

REACTIONS (2)
  - Drug dependence [Recovered/Resolved]
  - Incorrect dose administered [None]
